FAERS Safety Report 17097744 (Version 1)
Quarter: 2019Q4

REPORT INFORMATION
  Report Type: Spontaneous
  Country: DE (occurrence: DE)
  Receive Date: 20191202
  Receipt Date: 20191202
  Transmission Date: 20200122
  Serious: Yes (Death)
  Sender: FDA-Public Use
  Company Number: NVSC2019DE053784

PATIENT

DRUGS (5)
  1. FORMOTEROL FUMARATE [Suspect]
     Active Substance: FORMOTEROL FUMARATE
     Indication: ASTHMA
     Dosage: 6 UG, BID
     Route: 055
  2. BECLOMETASONE DIPROPIONATE [Suspect]
     Active Substance: BECLOMETHASONE DIPROPIONATE
     Indication: ASTHMA
     Dosage: 100 UG, BID
     Route: 055
  3. BECLOMETASONE DIPROPIONATE [Suspect]
     Active Substance: BECLOMETHASONE DIPROPIONATE
     Dosage: 200 UG, BID
     Route: 055
  4. GLYCOPYRRONIUM BROMIDE [Suspect]
     Active Substance: GLYCOPYRRONIUM
     Indication: ASTHMA
     Dosage: 10 UG, BID
     Route: 055
  5. TIOTROPIUM [Suspect]
     Active Substance: TIOTROPIUM
     Indication: ASTHMA
     Dosage: 2.5 UG, QD (2 INHALATIONS ONCE DAILY)
     Route: 055

REACTIONS (2)
  - Product use in unapproved indication [Unknown]
  - Pancreatitis acute [Fatal]
